FAERS Safety Report 4949071-4 (Version None)
Quarter: 2006Q1

REPORT INFORMATION
  Report Type: 
  Country: None (occurrence: None)
  Receive Date: 20060316
  Receipt Date: 20060306
  Transmission Date: 20060701
  Serious: Yes (Disabling, Other)
  Sender: FDA-Public Use
  Company Number: 2006033832

PATIENT
  Age: 44 Year
  Sex: Female
  Weight: 76.2043 kg

DRUGS (5)
  1. ZOLOFT [Suspect]
     Indication: DEPRESSION
     Dosage: (50 MG,  )
     Dates: start: 19980101
  2. TAMOXIFEN CITRATE [Concomitant]
  3. MEVACOR [Concomitant]
  4. VASOTEC [Concomitant]
  5. FLEXERIL [Concomitant]

REACTIONS (4)
  - BREAST CANCER FEMALE [None]
  - DEPRESSION [None]
  - FIBROMYALGIA [None]
  - SPINAL COLUMN STENOSIS [None]
